FAERS Safety Report 7354079-8 (Version None)
Quarter: 2011Q1

REPORT INFORMATION
  Report Type: 
  Country: None (occurrence: None)
  Receive Date: 20110315
  Receipt Date: 20110307
  Transmission Date: 20110831
  Serious: Yes (Death)
  Sender: FDA-Public Use
  Company Number: US-GILEAD-2011-0035237

PATIENT
  Sex: Male

DRUGS (9)
  1. WARFARIN [Concomitant]
  2. ALLOPURINOL [Concomitant]
  3. ATACAND [Concomitant]
  4. MULTI-VITAMINS [Concomitant]
  5. COREG [Concomitant]
  6. BUMEX [Concomitant]
  7. LETAIRIS [Suspect]
     Indication: PULMONARY HYPERTENSION
     Route: 048
     Dates: start: 20100527
  8. TORSEMIDE [Concomitant]
  9. DIGOXIN [Concomitant]

REACTIONS (1)
  - MULTI-ORGAN FAILURE [None]
